FAERS Safety Report 16572645 (Version 1)
Quarter: 2019Q3

REPORT INFORMATION
  Report Type: Spontaneous
  Country: US (occurrence: US)
  Receive Date: 20190715
  Receipt Date: 20190715
  Transmission Date: 20191004
  Serious: Yes (Other)
  Sender: FDA-Public Use
  Company Number: US-SA-2019SA187183

PATIENT
  Age: 52 Year
  Sex: Female

DRUGS (2)
  1. ACETYLSALICYLIC ACID [Suspect]
     Active Substance: ASPIRIN
     Dosage: UNK
  2. PRALUENT [Suspect]
     Active Substance: ALIROCUMAB
     Indication: BLOOD CHOLESTEROL
     Dosage: UNK UNK, QOW
     Dates: start: 201902

REACTIONS (5)
  - Injection site pain [Unknown]
  - Injection site bruising [Unknown]
  - Gallbladder operation [Unknown]
  - Cardiac operation [Unknown]
  - Product use issue [Unknown]

NARRATIVE: CASE EVENT DATE: 201902
